FAERS Safety Report 9365109 (Version 2)
Quarter: 2013Q3

REPORT INFORMATION
  Report Type: Spontaneous
  Country: US (occurrence: US)
  Receive Date: 20130624
  Receipt Date: 20130703
  Transmission Date: 20140515
  Serious: Yes (Hospitalization)
  Sender: FDA-Public Use
  Company Number: US-GILEAD-2013-0077519

PATIENT
  Sex: Female

DRUGS (4)
  1. LETAIRIS [Suspect]
     Indication: PULMONARY ARTERIAL HYPERTENSION
     Dates: start: 20100215
  2. REVATIO [Concomitant]
  3. FLOLAN [Concomitant]
  4. COUMADIN                           /00014802/ [Concomitant]

REACTIONS (1)
  - Food poisoning [Recovered/Resolved]
